FAERS Safety Report 13547466 (Version 10)
Quarter: 2018Q4

REPORT INFORMATION
  Report Type: Report from Study
  Country: None (occurrence: FR)
  Receive Date: 20170515
  Receipt Date: 20181207
  Transmission Date: 20190204
  Serious: Yes (Death, Hospitalization, Disabling)
  Sender: FDA-Public Use
  Company Number: FR-ABBVIE-17P-056-1949623-00

PATIENT
  Age: 64 Year
  Sex: Male

DRUGS (13)
  1. VENETOCLAX. [Suspect]
     Active Substance: VENETOCLAX
     Indication: B-CELL LYMPHOMA
     Dosage: MOST RECENT DOSE (800 MG) ON  04 MAY 2016
     Route: 048
     Dates: start: 20151130
  2. PREDNISONE. [Suspect]
     Active Substance: PREDNISONE
     Indication: B-CELL LYMPHOMA
     Dosage: DATE OF LAST DOSE 15 MAR 2016
     Route: 048
     Dates: start: 20151127
  3. CYCLOPHOSPHAMIDE. [Suspect]
     Active Substance: CYCLOPHOSPHAMIDE
     Indication: B-CELL LYMPHOMA
     Dosage: MOST RECENT DOSE(1350 MG) ON 11 MAR 2016 AT 14:30
     Route: 042
     Dates: start: 20151127
  4. VINCRISTINE [Suspect]
     Active Substance: VINCRISTINE
     Indication: B-CELL LYMPHOMA
     Dosage: DATE OF LAST DOSE (2 MG): 11 MAR 2016
     Route: 042
     Dates: start: 20151127
  5. ZELITREX [Concomitant]
     Active Substance: VALACYCLOVIR HYDROCHLORIDE
     Indication: PRODUCT USED FOR UNKNOWN INDICATION
     Dates: start: 20151201
  6. BACTRIM [Concomitant]
     Active Substance: SULFAMETHOXAZOLE\TRIMETHOPRIM
     Indication: PRODUCT USED FOR UNKNOWN INDICATION
     Dates: start: 20151201
  7. BISEPTINE [Concomitant]
     Active Substance: BENZALKONIUM CHLORIDE\BENZYL ALCOHOL\CHLORHEXIDINE
     Indication: DERMATOSIS
     Dates: start: 20160517
  8. ZYLORIC [Concomitant]
     Active Substance: ALLOPURINOL
     Indication: PRODUCT USED FOR UNKNOWN INDICATION
     Dates: start: 20151201, end: 20160622
  9. TOPALGIC [Concomitant]
     Indication: HEADACHE
     Dates: start: 20151204, end: 20160622
  10. RITUXIMAB. [Suspect]
     Active Substance: RITUXIMAB
     Indication: B-CELL LYMPHOMA
     Dosage: MOST RECENT DOSE (685 MG): 25 APR 2016 AT 12:00
     Route: 042
     Dates: start: 20151127
  11. LEDERFOLINE [Concomitant]
     Active Substance: LEUCOVORIN CALCIUM
     Indication: ANAEMIA
     Dates: start: 20151218
  12. DEXERYL [Concomitant]
     Indication: DERMATOSIS
     Dates: start: 20160425, end: 20160517
  13. DOXORUBICIN [Suspect]
     Active Substance: DOXORUBICIN
     Indication: B-CELL LYMPHOMA
     Dosage: DATE OF LAST DOSE (90 MG) ON 11 MAR 2016 AT 13:35
     Route: 042
     Dates: start: 20151127

REACTIONS (2)
  - Pseudomonal sepsis [Fatal]
  - Neutropenia [Not Recovered/Not Resolved]

NARRATIVE: CASE EVENT DATE: 20160606
